FAERS Safety Report 9631253 (Version 1)
Quarter: 2013Q4

REPORT INFORMATION
  Report Type: Spontaneous
  Country: JP (occurrence: JP)
  Receive Date: 20131018
  Receipt Date: 20131018
  Transmission Date: 20140711
  Serious: Yes (Other)
  Sender: FDA-Public Use
  Company Number: JP-PFIZER INC-2013289810

PATIENT
  Age: 89 Year
  Sex: Female

DRUGS (5)
  1. CEFTAZIDIME [Suspect]
     Indication: PNEUMONIA
     Dosage: 2 G, DAILY
  2. CLINDAMYCIN PHOSPHATE [Suspect]
     Indication: PNEUMONIA
     Dosage: 1200 MG, DAILY
  3. DORIPENEM [Suspect]
     Indication: PNEUMONIA
     Dosage: 0.75 MG, DAILY
  4. DORIPENEM [Suspect]
     Indication: URINARY TRACT INFECTION
  5. HEPARIN SODIUM [Suspect]
     Indication: ANTIPLATELET THERAPY
     Dosage: 10000 IU, DAILY

REACTIONS (2)
  - Pseudomembranous colitis [Unknown]
  - Shock haemorrhagic [Unknown]
